FAERS Safety Report 7792134-9 (Version None)
Quarter: 2011Q3

REPORT INFORMATION
  Report Type: 
  Country: None (occurrence: None)
  Receive Date: 20110929
  Receipt Date: 20110921
  Transmission Date: 20111222
  Serious: Yes (Other)
  Sender: FDA-Public Use
  Company Number: AUR-APL-2011-05056

PATIENT
  Sex: Female
  Weight: 79.3795 kg

DRUGS (4)
  1. GABAPENTIN [Suspect]
     Indication: NEURALGIA
     Dosage: 900 MG (300 MG,3 IN 1 D),ORAL ; 3 DOSAGE FORMS (1 DOSAGE FORMS,3 IN 1 D),ORAL
     Route: 048
     Dates: start: 20110826
  2. GABAPENTIN [Suspect]
     Indication: PAIN IN JAW
     Dosage: 900 MG (300 MG,3 IN 1 D),ORAL ; 3 DOSAGE FORMS (1 DOSAGE FORMS,3 IN 1 D),ORAL
     Route: 048
     Dates: start: 20110826
  3. CITALOPRAM HYDROBROMIDE [Concomitant]
  4. BLOOD PRESSURE MEDICATIONS [Concomitant]

REACTIONS (1)
  - DRUG INEFFECTIVE [None]
